FAERS Safety Report 5696544-5 (Version None)
Quarter: 2008Q2

REPORT INFORMATION
  Report Type: 
  Country: None (occurrence: None)
  Receive Date: 20080404
  Receipt Date: 20080404
  Transmission Date: 20081010
  Serious: Yes (Other)
  Sender: FDA-Public Use
  Company Number: None

PATIENT
  Age: 55 Year
  Sex: Female
  Weight: 99.7913 kg

DRUGS (2)
  1. CYMBALTA [Suspect]
     Indication: DEPRESSION
     Dosage: 20MG DAILY PO
     Route: 048
     Dates: start: 20080319, end: 20080330
  2. CYMBALTA [Suspect]
     Indication: POST-TRAUMATIC STRESS DISORDER
     Dosage: 20MG DAILY PO
     Route: 048
     Dates: start: 20080319, end: 20080330

REACTIONS (5)
  - DIZZINESS [None]
  - DYSSTASIA [None]
  - HAEMATEMESIS [None]
  - HEADACHE [None]
  - VISION BLURRED [None]
